FAERS Safety Report 11939128 (Version 1)
Quarter: 2016Q1

REPORT INFORMATION
  Report Type: Other
  Country: US (occurrence: US)
  Receive Date: 20160122
  Receipt Date: 20160122
  Transmission Date: 20160526
  Serious: Yes (Death)
  Sender: FDA-Public Use
  Company Number: US-OSMOTICA_PHARMACEUTICAL_CORP-POI0573201600007

PATIENT
  Age: 33 Year
  Sex: Male

DRUGS (12)
  1. CARISOPRODOL. [Suspect]
     Active Substance: CARISOPRODOL
     Dates: end: 2014
  2. MORPHINE [Suspect]
     Active Substance: MORPHINE
     Dates: end: 2014
  3. ACETAMINOPHEN WITH DIPHENHYDRAMINE [Suspect]
     Active Substance: ACETAMINOPHEN\DIPHENHYDRAMINE
     Dates: end: 2014
  4. LACTULOSE. [Suspect]
     Active Substance: LACTULOSE
     Dates: end: 2014
  5. POLYETHYLENE GLYCOL [Suspect]
     Active Substance: POLYETHYLENE GLYCOLS
     Dates: end: 2014
  6. BACLOFEN. [Suspect]
     Active Substance: BACLOFEN
     Dates: end: 2014
  7. PROMETHAZINE [Suspect]
     Active Substance: PROMETHAZINE\PROMETHAZINE HYDROCHLORIDE
     Dates: end: 2014
  8. CLONAZEPAM. [Suspect]
     Active Substance: CLONAZEPAM
     Dates: end: 2014
  9. OXYBUTYNIN CHLORIDE EXTENDED RELEASE [Suspect]
     Active Substance: OXYBUTYNIN CHLORIDE
     Dates: end: 2014
  10. LORAZEPAM. [Suspect]
     Active Substance: LORAZEPAM
     Dates: end: 2014
  11. TIZANIDINE. [Suspect]
     Active Substance: TIZANIDINE
     Dates: end: 2014
  12. HYDROMORPHONE [Suspect]
     Active Substance: HYDROMORPHONE
     Dates: end: 2014

REACTIONS (1)
  - Completed suicide [Fatal]

NARRATIVE: CASE EVENT DATE: 2014
